FAERS Safety Report 23831824 (Version 1)
Quarter: 2024Q2

REPORT INFORMATION
  Report Type: Spontaneous
  Country: US (occurrence: None)
  Receive Date: 20240507
  Receipt Date: 20240507
  Transmission Date: 20240715
  Serious: Yes (unspecified)
  Sender: FDA-Public Use
  Company Number: None

PATIENT
  Age: 51 Year
  Sex: Female
  Weight: 98.55 kg

DRUGS (1)
  1. FRUQUINTINIB [Suspect]
     Active Substance: FRUQUINTINIB
     Indication: Rectal cancer metastatic
     Dates: start: 20231215, end: 20240131

REACTIONS (5)
  - Stomatitis [None]
  - Decreased appetite [None]
  - Dehydration [None]
  - Weight decreased [None]
  - Performance status decreased [None]

NARRATIVE: CASE EVENT DATE: 20240118
